FAERS Safety Report 8269935-6 (Version None)
Quarter: 2012Q2

REPORT INFORMATION
  Report Type: 
  Country: None (occurrence: None)
  Receive Date: 20120410
  Receipt Date: 20120404
  Transmission Date: 20120825
  Serious: No
  Sender: FDA-Public Use
  Company Number: US-PFIZER INC-2012085720

PATIENT
  Sex: Female
  Weight: 70.295 kg

DRUGS (2)
  1. LYRICA [Suspect]
     Indication: FIBROMYALGIA
     Dosage: 50 MG, DAILY
     Dates: start: 20120326, end: 20120101
  2. AMITRIPTYLINE [Concomitant]
     Indication: FIBROMYALGIA
     Dosage: 100 MG, DAILY

REACTIONS (2)
  - OEDEMA PERIPHERAL [None]
  - PAIN IN EXTREMITY [None]
